FAERS Safety Report 24833016 (Version 1)
Quarter: 2025Q1

REPORT INFORMATION
  Report Type: Spontaneous
  Country: FR (occurrence: FR)
  Receive Date: 20250111
  Receipt Date: 20250111
  Transmission Date: 20250408
  Serious: Yes (Other)
  Sender: AMGEN
  Company Number: FR-AMGEN-FRASP2025002354

PATIENT

DRUGS (1)
  1. TRASTUZUMAB [Suspect]
     Active Substance: TRASTUZUMAB
     Indication: Biliary cancer metastatic
     Route: 065

REACTIONS (5)
  - Biliary cancer metastatic [Unknown]
  - Therapy partial responder [Unknown]
  - Systemic toxicity [Unknown]
  - Unevaluable event [Unknown]
  - Off label use [Unknown]
